FAERS Safety Report 6850479-0 (Version None)
Quarter: 2010Q3

REPORT INFORMATION
  Report Type: 
  Country: None (occurrence: None)
  Receive Date: 20100716
  Receipt Date: 20071123
  Transmission Date: 20110219
  Serious: No
  Sender: FDA-Public Use
  Company Number: US-PFIZER INC-2007087794

PATIENT
  Sex: Male
  Weight: 99.79 kg

DRUGS (6)
  1. CHANTIX [Suspect]
     Indication: SMOKING CESSATION THERAPY
     Dates: start: 20070901, end: 20070901
  2. METHADONE HCL [Concomitant]
  3. XANAX [Concomitant]
  4. CARDIOVASCULAR SYSTEM DRUGS [Concomitant]
  5. CHOLESTEROL [Concomitant]
  6. ANXIOLYTICS [Concomitant]

REACTIONS (3)
  - DEPRESSION [None]
  - DRUG INEFFECTIVE [None]
  - INCORRECT DOSE ADMINISTERED [None]
